FAERS Safety Report 19424879 (Version 4)
Quarter: 2022Q2

REPORT INFORMATION
  Report Type: Spontaneous
  Country: US (occurrence: US)
  Receive Date: 20210616
  Receipt Date: 20211202
  Transmission Date: 20220721
  Serious: Yes (Hospitalization, Other)
  Sender: FDA-Public Use
  Company Number: US-INCYTE CORPORATION-2021IN005179

PATIENT

DRUGS (4)
  1. JAKAFI [Suspect]
     Active Substance: RUXOLITINIB
     Indication: Polycythaemia vera
     Dosage: 10 MILLIGRAM, BID
     Route: 048
     Dates: start: 202012
  2. JAKAFI [Suspect]
     Active Substance: RUXOLITINIB
     Dosage: 10 MILLIGRAM, BID
     Route: 048
     Dates: start: 20201221
  3. JAKAFI [Suspect]
     Active Substance: RUXOLITINIB
     Dosage: 10 MILLIGRAM, BID
     Route: 048
     Dates: start: 20201221
  4. JAKAFI [Suspect]
     Active Substance: RUXOLITINIB
     Dosage: 15 MILLIGRAM, BID
     Route: 048
     Dates: start: 20201221

REACTIONS (22)
  - Splenic rupture [Recovering/Resolving]
  - Sepsis [Recovering/Resolving]
  - Pneumonia [Recovering/Resolving]
  - Fall [Recovering/Resolving]
  - Loss of consciousness [Unknown]
  - Malaise [Unknown]
  - Decreased appetite [Unknown]
  - Tinnitus [Unknown]
  - Fatigue [Unknown]
  - Joint injury [Recovering/Resolving]
  - Erythema [Recovering/Resolving]
  - Joint swelling [Recovering/Resolving]
  - Arthralgia [Recovering/Resolving]
  - Sleep disorder [Recovering/Resolving]
  - Memory impairment [Unknown]
  - Pancreatic cyst [Unknown]
  - Hepatic cyst [Unknown]
  - Renal cyst [Unknown]
  - Laziness [Unknown]
  - Weight decreased [Unknown]
  - Pruritus [Recovered/Resolved]
  - Frustration tolerance decreased [Unknown]
